FAERS Safety Report 4633044-5 (Version None)
Quarter: 2005Q2

REPORT INFORMATION
  Report Type: 
  Country: None (occurrence: None)
  Receive Date: 20050412
  Receipt Date: 20050331
  Transmission Date: 20051028
  Serious: Yes (Hospitalization)
  Sender: FDA-Public Use
  Company Number: US-BRISTOL-MYERS SQUIBB COMPANY-12916904

PATIENT
  Age: 26 Year
  Sex: Female

DRUGS (6)
  1. ABILIFY [Suspect]
     Indication: BIPOLAR DISORDER
  2. ABILIFY [Suspect]
     Indication: ANXIETY
  3. DEPAKOTE [Concomitant]
  4. LAMICTAL [Concomitant]
  5. ANTABUSE [Concomitant]
  6. LEXAPRO [Concomitant]

REACTIONS (4)
  - ANXIETY [None]
  - LOSS OF CONSCIOUSNESS [None]
  - NAUSEA [None]
  - SUPRAVENTRICULAR TACHYCARDIA [None]
